FAERS Safety Report 18990688 (Version 2)
Quarter: 2021Q1

REPORT INFORMATION
  Report Type: Report from Study
  Country: AR (occurrence: AR)
  Receive Date: 20210310
  Receipt Date: 20210324
  Transmission Date: 20210420
  Serious: Yes (Hospitalization)
  Sender: FDA-Public Use
  Company Number: NVSC2021AR052508

PATIENT
  Age: 34 Year
  Sex: Male

DRUGS (3)
  1. GILENYA [Suspect]
     Active Substance: FINGOLIMOD HYDROCHLORIDE
     Dosage: UNK
     Route: 065
     Dates: end: 20200214
  2. GILENYA [Suspect]
     Active Substance: FINGOLIMOD HYDROCHLORIDE
     Dosage: UNK
     Route: 065
  3. GILENYA [Suspect]
     Active Substance: FINGOLIMOD HYDROCHLORIDE
     Indication: MULTIPLE SCLEROSIS
     Dosage: 0.5 MG, QD
     Route: 048
     Dates: start: 20170417

REACTIONS (13)
  - Feeding disorder [Unknown]
  - Hepatic failure [Unknown]
  - Blood bilirubin increased [Unknown]
  - Stress [Unknown]
  - Fear [Unknown]
  - Bacterial infection [Unknown]
  - Renal failure [Recovered/Resolved]
  - Mental disorder [Unknown]
  - Yellow skin [Unknown]
  - Malnutrition [Unknown]
  - Hepatic enzyme decreased [Unknown]
  - Immunodeficiency [Unknown]
  - Anxiety [Unknown]

NARRATIVE: CASE EVENT DATE: 202003
